FAERS Safety Report 24941955 (Version 1)
Quarter: 2025Q1

REPORT INFORMATION
  Report Type: Spontaneous
  Country: US (occurrence: None)
  Receive Date: 20250207
  Receipt Date: 20250207
  Transmission Date: 20250409
  Serious: Yes (Other)
  Sender: FDA-CTU
  Company Number: None

PATIENT
  Age: 58 Year
  Sex: Male
  Weight: 103.05 kg

DRUGS (6)
  1. FARXIGA [Suspect]
     Active Substance: DAPAGLIFLOZIN PROPANEDIOL
     Indication: Glycosylated haemoglobin increased
     Dosage: OTHER QUANTITY : 1 CAPSULE(S);?FREQUENCY : DAILY;?
     Route: 048
     Dates: start: 20250109, end: 20250114
  2. NOVOLIN NOS [Concomitant]
     Active Substance: INSULIN HUMAN
  3. OLMESARTAN [Concomitant]
     Active Substance: OLMESARTAN
  4. GABAPENTIN [Concomitant]
     Active Substance: GABAPENTIN
  5. IRON [Concomitant]
     Active Substance: IRON
  6. VITAMIN D [Concomitant]
     Active Substance: VITAMIN D NOS

REACTIONS (4)
  - Chest pain [None]
  - Therapy cessation [None]
  - Abdominal pain upper [None]
  - Dysuria [None]

NARRATIVE: CASE EVENT DATE: 20250114
